FAERS Safety Report 7981723-4 (Version None)
Quarter: 2011Q4

REPORT INFORMATION
  Report Type: 
  Country: None (occurrence: None)
  Receive Date: 20111215
  Receipt Date: 20111207
  Transmission Date: 20120403
  Serious: Yes (Other)
  Sender: FDA-Public Use
  Company Number: IT-JNJFOC-20111204255

PATIENT
  Sex: Male

DRUGS (2)
  1. RISPERDAL [Suspect]
     Indication: DEPRESSION
     Route: 048
     Dates: start: 20110821, end: 20110821
  2. RISPERDAL [Suspect]
     Dosage: 1 MG/DIE
     Route: 048

REACTIONS (3)
  - INTENTIONAL OVERDOSE [None]
  - DIZZINESS [None]
  - TACHYCARDIA [None]
